FAERS Safety Report 4804762-0 (Version None)
Quarter: 2005Q4

REPORT INFORMATION
  Report Type: 
  Country: None (occurrence: None)
  Receive Date: 20051020
  Receipt Date: 20051011
  Transmission Date: 20060501
  Serious: Yes (Other)
  Sender: FDA-Public Use
  Company Number: PHEH2005US11439

PATIENT
  Sex: Male

DRUGS (1)
  1. ZOMETA [Suspect]
     Dosage: 4 MG, UNK

REACTIONS (1)
  - DRY SOCKET [None]
